FAERS Safety Report 16564556 (Version 1)
Quarter: 2019Q3

REPORT INFORMATION
  Report Type: Spontaneous
  Country: CA (occurrence: CA)
  Receive Date: 20190712
  Receipt Date: 20190712
  Transmission Date: 20191004
  Serious: Yes (Hospitalization)
  Sender: FDA-Public Use
  Company Number: CA-TEVA-2019-CA-1071928

PATIENT
  Age: 70 Year
  Sex: Female

DRUGS (16)
  1. CARBIDOPA/LEVODOPA [Suspect]
     Active Substance: CARBIDOPA\LEVODOPA
     Indication: PARKINSON^S DISEASE
     Dosage: 1000250 MILLIGRAM DAILY;
     Route: 065
  2. NABILONE [Suspect]
     Active Substance: NABILONE
     Indication: PARKINSON^S DISEASE
     Route: 048
  3. PRAMIPEXOLE. [Suspect]
     Active Substance: PRAMIPEXOLE
     Indication: PARKINSON^S DISEASE
     Route: 065
  4. ENTACAPONE. [Suspect]
     Active Substance: ENTACAPONE
     Route: 065
  5. ENTACAPONE. [Suspect]
     Active Substance: ENTACAPONE
     Indication: PARKINSON^S DISEASE
     Dosage: 1000 MILLIGRAM DAILY;
     Route: 065
  6. NABILONE [Suspect]
     Active Substance: NABILONE
     Indication: PRODUCT USED FOR UNKNOWN INDICATION
     Route: 048
  7. PRAMIPEXOLE. [Suspect]
     Active Substance: PRAMIPEXOLE
     Route: 065
  8. FLUDROCORTISONE [Suspect]
     Active Substance: FLUDROCORTISONE
     Indication: PSYCHOTIC DISORDER
     Dosage: .1 MILLIGRAM DAILY;
     Route: 065
  9. PRAMIPEXOLE. [Suspect]
     Active Substance: PRAMIPEXOLE
     Dosage: 4.5 MILLIGRAM DAILY;
     Route: 065
  10. QUETIAPINE FUMARATE. [Suspect]
     Active Substance: QUETIAPINE FUMARATE
     Indication: PSYCHOTIC DISORDER
     Dosage: 12.5 MILLIGRAM DAILY;
     Route: 065
  11. CLOZAPINE. [Suspect]
     Active Substance: CLOZAPINE
     Indication: PSYCHOTIC DISORDER
     Dosage: 37.5 MILLIGRAM DAILY;
     Route: 065
  12. CLOZAPINE. [Suspect]
     Active Substance: CLOZAPINE
     Indication: PARKINSON^S DISEASE
     Route: 065
  13. AMANTADINE. [Suspect]
     Active Substance: AMANTADINE HYDROCHLORIDE
     Indication: PSYCHOTIC DISORDER
     Route: 065
  14. ENTACAPONE. [Suspect]
     Active Substance: ENTACAPONE
     Dosage: 1000 MILLIGRAM DAILY;
     Route: 065
  15. CARBIDOPA/LEVODOPA [Suspect]
     Active Substance: CARBIDOPA\LEVODOPA
     Route: 065
  16. AMANTADINE. [Suspect]
     Active Substance: AMANTADINE HYDROCHLORIDE
     Indication: PARKINSON^S DISEASE
     Dosage: 300 MILLIGRAM DAILY;
     Route: 065

REACTIONS (6)
  - Orthostatic hypotension [Recovered/Resolved]
  - Dystonia [Recovered/Resolved]
  - Therapeutic response shortened [Recovered/Resolved]
  - Psychotic disorder [Recovered/Resolved]
  - Parkinson^s disease psychosis [Recovered/Resolved]
  - Therapeutic product effect incomplete [Recovered/Resolved]
